FAERS Safety Report 4555957-5 (Version None)
Quarter: 2005Q1

REPORT INFORMATION
  Report Type: 
  Country: None (occurrence: None)
  Receive Date: 20050119
  Receipt Date: 20050110
  Transmission Date: 20050727
  Serious: Yes (Life-Threatening, Hospitalization)
  Sender: FDA-Public Use
  Company Number: FR-NOVOPROD-241561

PATIENT
  Age: 56 Year
  Sex: Male
  Weight: 90 kg

DRUGS (4)
  1. NOVOSEVEN [Suspect]
     Indication: HAEMOPHILIA
     Dosage: 90 UG/KG, EVERY 2 HOURS
     Dates: start: 20041206, end: 20041207
  2. NOVOSEVEN [Suspect]
     Dosage: 90 UG/KG, EVERY 2 HOURS
     Dates: start: 20041206, end: 20041207
  3. NOVOSEVEN [Suspect]
     Dosage: 90 UG/KG, EVERY 2 HOURS
     Dates: start: 20041206, end: 20041207
  4. NOVOSEVEN [Suspect]
     Dosage: 90 UG/KG, EVERY 2 HOURS
     Dates: start: 20041206, end: 20041207

REACTIONS (1)
  - MYOCARDIAL INFARCTION [None]
